FAERS Safety Report 5037207-9 (Version None)
Quarter: 2006Q2

REPORT INFORMATION
  Report Type: 
  Country: None (occurrence: None)
  Receive Date: 20060628
  Receipt Date: 20060116
  Transmission Date: 20061013
  Serious: Yes (Life-Threatening)
  Sender: FDA-Public Use
  Company Number: FR-SANOFI-SYNTHELABO-F01200600132

PATIENT
  Sex: Male

DRUGS (33)
  1. RADIOTHERAPY [Concomitant]
     Indication: OESOPHAGEAL CARCINOMA
     Dosage: TOTAL DOSE OF FRACTION ADMINISTERED BEFORE SAE: 50 GY
     Route: 050
     Dates: start: 20051114, end: 20051216
  2. GRANOCYTES [Concomitant]
     Indication: NEUTROPENIA
     Route: 042
     Dates: start: 20051228, end: 20060108
  3. ARANESP [Concomitant]
     Indication: ANAEMIA
     Route: 058
     Dates: start: 20051230, end: 20060101
  4. AXEPIM [Concomitant]
     Indication: INFECTION PROPHYLAXIS
     Route: 042
     Dates: start: 20051201, end: 20060101
  5. FORLAX [Concomitant]
     Indication: CONSTIPATION
     Route: 048
     Dates: start: 20051218, end: 20060101
  6. TRIFLUCAN [Concomitant]
     Indication: INFECTION PROPHYLAXIS
     Route: 048
     Dates: start: 20051212, end: 20060201
  7. VOLUVEN [Concomitant]
     Indication: PROPHYLAXIS
     Route: 042
     Dates: start: 20060101, end: 20060103
  8. DIANTALVIC [Concomitant]
     Indication: OESOPHAGEAL PAIN
     Route: 048
     Dates: start: 20051231, end: 20060102
  9. ATARAX [Concomitant]
     Indication: INSOMNIA
     Route: 048
     Dates: start: 20051226, end: 20060201
  10. ACTRAPID [Concomitant]
     Indication: DIABETES MELLITUS
     Route: 058
     Dates: start: 20051128
  11. PRIMPERAN TAB [Concomitant]
     Indication: NAUSEA
     Route: 042
     Dates: start: 20051116, end: 20060201
  12. NISISCO [Concomitant]
     Indication: HYPERTENSION
     Route: 048
  13. ALLOPURINOL [Concomitant]
     Indication: HYPERURICAEMIA
     Route: 048
  14. ZANIDIP [Concomitant]
     Indication: HYPERTENSION
     Route: 048
  15. TAHOR [Concomitant]
     Indication: HYPERCHOLESTEROLAEMIA
     Route: 048
  16. LEUCOVORIN CALCIUM [Suspect]
     Indication: OESOPHAGEAL CARCINOMA
     Route: 042
     Dates: start: 20051114, end: 20051115
  17. LEUCOVORIN CALCIUM [Suspect]
     Route: 042
     Dates: start: 20051128, end: 20051129
  18. LEUCOVORIN CALCIUM [Suspect]
     Route: 042
     Dates: start: 20051212, end: 20051213
  19. LEUCOVORIN CALCIUM [Suspect]
     Route: 042
     Dates: start: 20051226, end: 20051227
  20. LEUCOVORIN CALCIUM [Suspect]
     Route: 042
     Dates: start: 20060120, end: 20060121
  21. LEUCOVORIN CALCIUM [Suspect]
     Route: 042
     Dates: start: 20060203, end: 20060204
  22. FLUOROURACIL [Suspect]
     Indication: OESOPHAGEAL CARCINOMA
     Route: 042
     Dates: start: 20051114, end: 20051115
  23. FLUOROURACIL [Suspect]
     Route: 042
     Dates: start: 20051128, end: 20051129
  24. FLUOROURACIL [Suspect]
     Route: 042
     Dates: start: 20051212, end: 20051213
  25. FLUOROURACIL [Suspect]
     Route: 042
     Dates: start: 20051226, end: 20051227
  26. FLUOROURACIL [Suspect]
     Route: 042
     Dates: start: 20060120, end: 20060121
  27. FLUOROURACIL [Suspect]
     Route: 042
     Dates: start: 20060203, end: 20060204
  28. OXALIPLATIN [Suspect]
     Indication: OESOPHAGEAL CARCINOMA
     Route: 042
     Dates: start: 20051114, end: 20051114
  29. OXALIPLATIN [Suspect]
     Route: 042
     Dates: start: 20051128, end: 20051129
  30. OXALIPLATIN [Suspect]
     Route: 042
     Dates: start: 20051212, end: 20051212
  31. OXALIPLATIN [Suspect]
     Route: 042
     Dates: start: 20051226, end: 20051226
  32. OXALIPLATIN [Suspect]
     Route: 042
     Dates: start: 20060120, end: 20060120
  33. OXALIPLATIN [Suspect]
     Route: 042
     Dates: start: 20060203, end: 20060203

REACTIONS (10)
  - ANAEMIA [None]
  - BRONCHITIS [None]
  - DIABETIC COMPLICATION [None]
  - FEBRILE NEUTROPENIA [None]
  - HYPOTENSION [None]
  - LEUKOPENIA [None]
  - LOSS OF CONSCIOUSNESS [None]
  - LUNG DISORDER [None]
  - RENAL FAILURE [None]
  - SEPSIS [None]
